FAERS Safety Report 18116233 (Version 3)
Quarter: 2020Q4

REPORT INFORMATION
  Report Type: Spontaneous
  Country: JP (occurrence: JP)
  Receive Date: 20200806
  Receipt Date: 20201130
  Transmission Date: 20210113
  Serious: Yes (Death)
  Sender: FDA-Public Use
  Company Number: JP-ROCHE-2653820

PATIENT
  Age: 75 Year
  Sex: Male
  Weight: 70 kg

DRUGS (14)
  1. BENDAMUSTINE HYDROCHLORIDE. [Suspect]
     Active Substance: BENDAMUSTINE HYDROCHLORIDE
     Indication: PRODUCT USED FOR UNKNOWN INDICATION
     Dosage: DOSAGE IS UNCERTAIN.
     Route: 041
     Dates: end: 2020
  2. XARELTO [Concomitant]
     Active Substance: RIVAROXABAN
     Route: 065
  3. GAZYVA [Suspect]
     Active Substance: OBINUTUZUMAB
     Dosage: DOSAGE IS UNCERTAIN.
     Route: 041
     Dates: start: 20200618, end: 20200618
  4. NEXIUM [Concomitant]
     Active Substance: ESOMEPRAZOLE MAGNESIUM
     Route: 065
  5. MICARDIS [Concomitant]
     Active Substance: TELMISARTAN
     Route: 065
  6. CADUET [Concomitant]
     Active Substance: AMLODIPINE BESYLATE\ATORVASTATIN CALCIUM
     Route: 065
  7. ALOXI [Concomitant]
     Active Substance: PALONOSETRON HYDROCHLORIDE
  8. URIEF [Concomitant]
     Active Substance: SILODOSIN
     Route: 065
  9. CLOPIDOGREL [Concomitant]
     Active Substance: CLOPIDOGREL BISULFATE
     Route: 065
  10. GAZYVA [Suspect]
     Active Substance: OBINUTUZUMAB
     Indication: B-CELL LYMPHOMA
     Dosage: DOSAGE IS UNCERTAIN.
     Route: 041
     Dates: start: 20200422, end: 20200507
  11. ARTIST [Concomitant]
     Active Substance: CARVEDILOL
     Route: 065
  12. GAZYVA [Suspect]
     Active Substance: OBINUTUZUMAB
     Dosage: DOSAGE IS UNCERTAIN.
     Route: 041
     Dates: start: 20200520, end: 20200520
  13. NIFEDIPINE. [Concomitant]
     Active Substance: NIFEDIPINE
     Route: 065
  14. DIART [Concomitant]
     Active Substance: AZOSEMIDE
     Route: 065

REACTIONS (1)
  - Ventricular fibrillation [Fatal]

NARRATIVE: CASE EVENT DATE: 20200709
